FAERS Safety Report 9629323 (Version 1)
Quarter: 2013Q4

REPORT INFORMATION
  Report Type: Spontaneous
  Country: DE (occurrence: DE)
  Receive Date: 20131017
  Receipt Date: 20131017
  Transmission Date: 20140711
  Serious: Yes (Other)
  Sender: FDA-Public Use
  Company Number: DE-PFIZER INC-2013294553

PATIENT
  Age: 37 Year
  Sex: Female
  Weight: 62 kg

DRUGS (5)
  1. RAMIPRIL [Suspect]
     Indication: HYPERTENSION
     Dosage: 0. - 4.5. GESTATIONAL WEEK
     Route: 048
     Dates: start: 20090820, end: 20090922
  2. OBSIDAN [Suspect]
     Indication: HYPERTENSION
     Dosage: 25 MG, 2X/DAY; 0. -33.4. GESTATIONAL WEEK
     Route: 048
     Dates: start: 20090820, end: 20100412
  3. DOPEGYT [Suspect]
     Indication: HYPERTENSION
     Dosage: 250 MG DAILY, 4.5. - 33.4. GESTATIONAL WEEK), SHORTLY BEFORE BIRTH: 6X250MG
     Route: 048
     Dates: start: 20090922, end: 20100412
  4. UTROGEST [Suspect]
     Indication: ABORTION THREATENED
     Dosage: 100 MG, DAILY; 11. - 14. GESTATIONAL WEEK
     Route: 067
     Dates: start: 20091105, end: 20091126
  5. FOLIC ACID [Concomitant]
     Indication: PROPHYLAXIS OF NEURAL TUBE DEFECT
     Dosage: 0.8 MG, 1X/DAY, 5. - 12. GESTATIONAL WEEK
     Route: 048

REACTIONS (5)
  - Complication of pregnancy [Unknown]
  - Pre-eclampsia [Unknown]
  - Gestational diabetes [Unknown]
  - Abortion threatened [Unknown]
  - Premature labour [Unknown]
